FAERS Safety Report 5929640-5 (Version None)
Quarter: 2008Q4

REPORT INFORMATION
  Report Type: 
  Country: None (occurrence: None)
  Receive Date: 20081024
  Receipt Date: 20081021
  Transmission Date: 20090506
  Serious: Yes (Hospitalization)
  Sender: FDA-Public Use
  Company Number: BR-ASTRAZENECA-2008UW15604

PATIENT
  Age: 11296 Day
  Sex: Male
  Weight: 65 kg

DRUGS (2)
  1. SYMBICORT [Suspect]
     Indication: ASTHMA
     Dosage: 320/9 BID
     Route: 055
     Dates: start: 20080620, end: 20080701
  2. SYMBICORT [Suspect]
     Dosage: 160/4.5 BID
     Route: 055
     Dates: start: 20080701

REACTIONS (13)
  - ABDOMINAL PAIN UPPER [None]
  - ASTHENIA [None]
  - CHILLS [None]
  - DYSPNOEA [None]
  - HEADACHE [None]
  - LYMPHADENITIS [None]
  - MALAISE [None]
  - NASAL CONGESTION [None]
  - NAUSEA [None]
  - PNEUMONIA [None]
  - PYREXIA [None]
  - SYNCOPE [None]
  - VARICELLA [None]
